FAERS Safety Report 4823187-5 (Version None)
Quarter: 2005Q4

REPORT INFORMATION
  Report Type: 
  Country: None (occurrence: None)
  Receive Date: 20051027
  Receipt Date: 20050328
  Transmission Date: 20060501
  Serious: Yes (Other)
  Sender: FDA-Public Use
  Company Number: HQWYE540330MAR05

PATIENT

DRUGS (5)
  1. PREMARIN [Suspect]
     Indication: HORMONE REPLACEMENT THERAPY
     Dosage: ORAL
     Route: 048
     Dates: start: 19850101, end: 20030101
  2. CLIMARA [Suspect]
  3. ESTRACE [Suspect]
  4. ESTRATEST [Suspect]
  5. ESTRATEST H.S. [Suspect]

REACTIONS (1)
  - OVARIAN CANCER [None]
